FAERS Safety Report 6185251-0 (Version None)
Quarter: 2009Q2

REPORT INFORMATION
  Report Type: 
  Country: None (occurrence: None)
  Receive Date: 20090507
  Receipt Date: 20090424
  Transmission Date: 20091009
  Serious: Yes (Hospitalization)
  Sender: FDA-Public Use
  Company Number: 000625

PATIENT
  Sex: Female

DRUGS (11)
  1. VIMPAT [Suspect]
     Dosage: SEE IMAGE
     Route: 048
     Dates: start: 20090101
  2. VIMPAT [Suspect]
     Dosage: SEE IMAGE
     Route: 048
     Dates: start: 20090101
  3. VIMPAT [Suspect]
     Dosage: SEE IMAGE
     Route: 048
     Dates: start: 20090101
  4. VIMPAT [Suspect]
     Dosage: SEE IMAGE
     Route: 048
     Dates: start: 20090201
  5. LAMOTRIGINE [Concomitant]
  6. QUETIAPINE FUMARATE [Concomitant]
  7. LEVETIRACETAM [Concomitant]
  8. ALENDRONAT [Concomitant]
  9. ADCAL /00056901/ [Concomitant]
  10. TEMAZEPAM [Concomitant]
  11. MOVICOL /01749801/ [Concomitant]

REACTIONS (4)
  - HEADACHE [None]
  - NAUSEA [None]
  - STOMATITIS [None]
  - VOMITING [None]
